FAERS Safety Report 8191737-X (Version None)
Quarter: 2012Q1

REPORT INFORMATION
  Report Type: 
  Country: None (occurrence: None)
  Receive Date: 20120307
  Receipt Date: 20120306
  Transmission Date: 20120608
  Serious: Yes (Other)
  Sender: FDA-Public Use
  Company Number: US-PFIZER INC-2012059837

PATIENT
  Sex: Male

DRUGS (15)
  1. ATENOLOL [Concomitant]
     Dosage: 25 MG, 1X/DAY
  2. VITAMIN D [Concomitant]
     Dosage: 2000 IU, 1X/DAY
  3. COZAAR [Concomitant]
     Dosage: 50 MG, 1X/DAY
     Dates: end: 20110101
  4. AMLODIPINE BESILATE [Concomitant]
     Dosage: 5 MG, UNK
  5. CILOSTAZOL [Concomitant]
     Dosage: 50 MG, (1 AM + 1 PM)
  6. IRON [Concomitant]
     Dosage: 325 MG, 1X/DAY (EVERY DAY)
  7. SYNTHROID [Concomitant]
     Dosage: 0.075 MG, 1
  8. FUROSEMIDE [Concomitant]
     Dosage: 20 MG,(1 PILL)
     Dates: end: 20120202
  9. LOSARTAN [Concomitant]
     Dosage: 50 M
     Dates: start: 20110101
  10. LIPITOR [Suspect]
     Dosage: 80 MG, 1X/DAY
  11. ACETYLSALICYLIC ACID [Concomitant]
     Dosage: 325 MG, 1X
  12. FOLIC ACID [Concomitant]
     Dosage: UNK, 1X
  13. PROCRIT [Concomitant]
     Indication: BLOOD COUNT
     Dosage: 40,000 UNITS, UNK
  14. CALCITRIOL [Concomitant]
     Dosage: 0.25 MG, (MON-FRI 2 PILLS A DAY)
  15. VITAMIN B-12 [Concomitant]
     Dosage: 1X A MONTH

REACTIONS (1)
  - THALASSAEMIA ALPHA [None]
